FAERS Safety Report 8079743-7 (Version None)
Quarter: 2012Q1

REPORT INFORMATION
  Report Type: 
  Country: None (occurrence: None)
  Receive Date: 20120128
  Receipt Date: 20110719
  Transmission Date: 20120608
  Serious: No
  Sender: FDA-Public Use
  Company Number: US-ABBOTT-11P-163-0840392-00

PATIENT
  Age: 58 Year
  Sex: Female

DRUGS (14)
  1. VESICARE [Concomitant]
     Indication: URINARY INCONTINENCE
     Dosage: UNREPORTED DOSE - DAILY
     Route: 048
  2. AMLODIPINE [Concomitant]
     Indication: BLOOD PRESSURE
     Dosage: 5 MG DAILY
  3. FISH OIL [Concomitant]
     Indication: SUPPLEMENTATION THERAPY
     Route: 048
  4. PREVACID [Concomitant]
     Indication: GASTROOESOPHAGEAL REFLUX DISEASE
     Dosage: 2 CAPSULES OTC; 2 EACH AM AND PM
  5. CRESTOR [Concomitant]
     Indication: BLOOD CHOLESTEROL
     Dosage: 10 MG EVERY NIGHT
     Route: 048
  6. COZAAR [Concomitant]
     Indication: HYPERTENSION
     Dosage: 100 MG EVERY MORNING
     Route: 048
  7. CALCIUM [Concomitant]
     Indication: MINERAL SUPPLEMENTATION
     Dosage: DOSE NOT REPORTED - TWICE A DAY
     Route: 048
  8. STOOL SOFTENER [Concomitant]
     Indication: CONSTIPATION
     Dosage: OVER THE COUNTER; ONE EVERY DAY
     Route: 048
  9. ASPIRIN [Concomitant]
     Indication: ANTICOAGULANT THERAPY
     Dosage: 325 MG EVERY DAY
     Route: 048
  10. TRICOR [Concomitant]
     Indication: BLOOD TRIGLYCERIDES INCREASED
     Dosage: 145 MG EVERY EVENING
     Route: 048
  11. LANTUS [Concomitant]
     Indication: DIABETES MELLITUS
     Dosage: AT BEDTIME
     Route: 050
  12. HUMIRA [Suspect]
     Indication: PSORIASIS
     Dates: start: 20110613
  13. BYETTA [Concomitant]
     Indication: DIABETES MELLITUS
     Dosage: 250MCG/ML; UNREPORTED DOSE
     Route: 050
  14. ROPINIROLE [Concomitant]
     Indication: RESTLESS LEGS SYNDROME
     Dosage: DOSE NOT REPORTED - DAILY
     Route: 048

REACTIONS (5)
  - PRURITUS [None]
  - PSORIASIS [None]
  - SKIN HAEMORRHAGE [None]
  - HYPOGLYCAEMIA [None]
  - SKIN EXFOLIATION [None]
